FAERS Safety Report 10023546 (Version 1)
Quarter: 2014Q1

REPORT INFORMATION
  Report Type: Spontaneous
  Country: US (occurrence: None)
  Receive Date: 20140106
  Receipt Date: 20140106
  Transmission Date: 20141002
  Serious: Yes (Other)
  Sender: FDA-Public Use
  Company Number: 2013-00137

PATIENT
  Age: 69 Year
  Sex: Male

DRUGS (3)
  1. ZICAM ULTRA COLD REMEDY RAPIDMELTS [Suspect]
     Indication: NASOPHARYNGITIS
     Dosage: 1 RAPIDMELT EVERY 3-4 HOURS
     Dates: start: 20131110, end: 20131114
  2. UNSPECIFIED INHALERS [Concomitant]
  3. UNSPECIFIED DIURETIC [Concomitant]

REACTIONS (1)
  - Ageusia [None]
